FAERS Safety Report 5499575-3 (Version None)
Quarter: 2007Q4

REPORT INFORMATION
  Report Type: 
  Country: None (occurrence: None)
  Receive Date: 20071026
  Receipt Date: 20071017
  Transmission Date: 20080405
  Serious: Yes (Hospitalization)
  Sender: FDA-Public Use
  Company Number: US-ELI_LILLY_AND_COMPANY-US200710004471

PATIENT
  Sex: Female

DRUGS (16)
  1. BYETTA [Suspect]
     Indication: TYPE 2 DIABETES MELLITUS
     Dosage: 5 UG, 2/D
     Route: 058
  2. BYETTA [Suspect]
     Dosage: 10 UG, 2/D
     Route: 058
  3. BYETTA [Suspect]
     Dosage: 5 UG, 2/D
     Route: 058
  4. ASTELIN [Concomitant]
     Dosage: 30 MG, AS NEEDED
     Route: 048
  5. AVANDIA [Concomitant]
     Dosage: 2 MG, DAILY (1/D)
     Route: 048
  6. BENICAR [Concomitant]
     Dosage: 40 MG, DAILY (1/D)
     Route: 048
  7. DARVOCET [Concomitant]
     Dosage: 1 D/F, DAILY (1/D)
     Route: 048
  8. FLEXERIL [Concomitant]
     Dosage: 10 MG, AS NEEDED
     Route: 048
  9. FLONASE [Concomitant]
     Dosage: UNK, AS NEEDED
     Route: 065
  10. LIPITOR [Concomitant]
     Dosage: 10 MG, DAILY (1/D)
     Route: 048
  11. OMACOR [Concomitant]
     Dosage: 2 G, 2/D
     Route: 048
  12. SINGULAIR [Concomitant]
     Dosage: 10 MG, DAILY (1/D)
     Route: 048
  13. TRICOR [Concomitant]
     Dosage: 145 MG, DAILY (1/D)
     Route: 048
  14. SYNTHROID [Concomitant]
     Dosage: 0.175 MG, DAILY (1/D)
     Route: 048
  15. ULTRAM [Concomitant]
     Dosage: 200 MG, DAILY (1/D)
     Route: 048
  16. WELLBUTRIN [Concomitant]
     Dosage: 300 MG, DAILY (1/D)
     Route: 048

REACTIONS (1)
  - PANCREATITIS [None]
